FAERS Safety Report 9013074 (Version 1)
Quarter: 2013Q1

REPORT INFORMATION
  Report Type: Spontaneous
  Country: US (occurrence: US)
  Receive Date: 20130115
  Receipt Date: 20130115
  Transmission Date: 20140127
  Serious: Yes (Other)
  Sender: FDA-Public Use
  Company Number: US-009507513-1012USA00455

PATIENT
  Age: 10 Year
  Sex: Male
  Weight: 34.93 kg

DRUGS (1)
  1. SINGULAIR [Suspect]
     Indication: MULTIPLE ALLERGIES
     Dosage: UNK , UNK
     Route: 048
     Dates: start: 20030101, end: 20091115

REACTIONS (8)
  - Self injurious behaviour [Recovering/Resolving]
  - Aggression [Recovering/Resolving]
  - Agitation [Recovering/Resolving]
  - Anxiety [Recovering/Resolving]
  - Frustration [Recovering/Resolving]
  - Poor quality sleep [Recovering/Resolving]
  - Self esteem decreased [Recovering/Resolving]
  - Wheezing [Recovering/Resolving]
